FAERS Safety Report 4668984-4 (Version None)
Quarter: 2005Q2

REPORT INFORMATION
  Report Type: 
  Country: None (occurrence: None)
  Receive Date: 20050523
  Receipt Date: 20050510
  Transmission Date: 20051028
  Serious: Yes (Hospitalization)
  Sender: FDA-Public Use
  Company Number: FR-GLAXOSMITHKLINE-B0380912A

PATIENT
  Age: 33 Year
  Sex: Female

DRUGS (3)
  1. LAMICTAL [Suspect]
     Route: 048
     Dates: start: 20050401
  2. URBANYL [Concomitant]
     Indication: EPILEPSY
     Route: 048
  3. DIHYDAN [Concomitant]
     Indication: EPILEPSY
     Route: 048

REACTIONS (4)
  - CONVULSION [None]
  - FALL [None]
  - JOINT DISLOCATION [None]
  - SKIN LESION [None]
